FAERS Safety Report 10447666 (Version 1)
Quarter: 2014Q3

REPORT INFORMATION
  Report Type: Spontaneous
  Country: CA (occurrence: None)
  Receive Date: 20140910
  Receipt Date: 20140910
  Transmission Date: 20150326
  Serious: Yes (Hospitalization)
  Sender: FDA-Public Use
  Company Number: None

PATIENT
  Age: 2 Year
  Sex: Male
  Weight: 9.8 kg

DRUGS (8)
  1. G-CSF (FILGRASTIM, AMGEN) [Suspect]
     Active Substance: FILGRASTIM
  2. VINCRISTINE SULFATE. [Suspect]
     Active Substance: VINCRISTINE SULFATE
  3. CARBOPLATIN. [Suspect]
     Active Substance: CARBOPLATIN
  4. THIOTEPA. [Suspect]
     Active Substance: THIOTEPA
  5. CISPLATIN. [Suspect]
     Active Substance: CISPLATIN
  6. ETOPOSIDE. [Suspect]
     Active Substance: ETOPOSIDE
  7. MESNA. [Suspect]
     Active Substance: MESNA
  8. CYCLOPHOSPHAMIDE. [Suspect]
     Active Substance: CYCLOPHOSPHAMIDE

REACTIONS (8)
  - Pseudomembranous colitis [None]
  - Abdominal pain [None]
  - Diarrhoea [None]
  - Sepsis [None]
  - Abdominal distension [None]
  - Febrile neutropenia [None]
  - Respiratory distress [None]
  - Hypertension [None]

NARRATIVE: CASE EVENT DATE: 20140820
